FAERS Safety Report 6886739-7 (Version None)
Quarter: 2010Q3

REPORT INFORMATION
  Report Type: 
  Country: None (occurrence: None)
  Receive Date: 20100730
  Receipt Date: 20100726
  Transmission Date: 20110219
  Serious: No
  Sender: FDA-Public Use
  Company Number: 2010BI003282

PATIENT
  Sex: Male

DRUGS (1)
  1. TYSABRI [Suspect]
     Indication: MULTIPLE SCLEROSIS
     Route: 042
     Dates: start: 20080619, end: 20100604

REACTIONS (3)
  - HEMIPARESIS [None]
  - INTERVERTEBRAL DISC COMPRESSION [None]
  - INTERVERTEBRAL DISC PROTRUSION [None]
